FAERS Safety Report 7137965-3 (Version None)
Quarter: 2010Q4

REPORT INFORMATION
  Report Type: 
  Country: None (occurrence: None)
  Receive Date: 20101118
  Receipt Date: 20101104
  Transmission Date: 20110411
  Serious: Yes (Hospitalization, Disabling, Other)
  Sender: FDA-Public Use
  Company Number: 2010PV000089

PATIENT
  Age: 13 Year
  Sex: Male
  Weight: 55 kg

DRUGS (5)
  1. DEPOCYT [Suspect]
     Indication: LEUKAEMIC INFILTRATION BRAIN
     Dosage: 35 MG;QOW;INTH
     Route: 037
     Dates: start: 20071024, end: 20071129
  2. METHOTREXATE [Concomitant]
  3. ARA-C [Concomitant]
  4. PURINETHOL [Concomitant]
  5. HYDROCORTISONE [Concomitant]

REACTIONS (3)
  - LEUKAEMIC INFILTRATION BRAIN [None]
  - MALIGNANT NEOPLASM PROGRESSION [None]
  - POST LUMBAR PUNCTURE SYNDROME [None]
